FAERS Safety Report 4530966-0 (Version None)
Quarter: 2004Q4

REPORT INFORMATION
  Report Type: 
  Country: None (occurrence: None)
  Receive Date: 20041217
  Receipt Date: 20041210
  Transmission Date: 20050328
  Serious: Yes (Other)
  Sender: FDA-Public Use
  Company Number: IT-MERCK-0412ITA00027

PATIENT
  Age: 56 Year
  Sex: Male

DRUGS (2)
  1. VIOXX [Suspect]
     Indication: RHEUMATOID ARTHRITIS
     Route: 065
     Dates: start: 20020101, end: 20040901
  2. VIOXX [Suspect]
     Indication: POLYARTHRITIS
     Route: 065
     Dates: start: 20020101, end: 20040901

REACTIONS (1)
  - ANGINA PECTORIS [None]
